FAERS Safety Report 8824632 (Version 1)
Quarter: 2012Q4

REPORT INFORMATION
  Report Type: 
  Country: US (occurrence: US)
  Receive Date: 20121004
  Receipt Date: 20121004
  Transmission Date: 20130627
  Serious: No
  Sender: FDA-Public Use
  Company Number: PHEH2012US019286

PATIENT
  Age: 49 Year
  Sex: Male

DRUGS (2)
  1. TASIGNA [Suspect]
     Dosage: 200 mg, BID
     Route: 048
  2. CLARITIN [Concomitant]
     Dosage: 10 mg, UNK

REACTIONS (2)
  - Back pain [Unknown]
  - Headache [Unknown]
